FAERS Safety Report 20354094 (Version 6)
Quarter: 2022Q4

REPORT INFORMATION
  Report Type: Spontaneous
  Country: US (occurrence: US)
  Receive Date: 20220120
  Receipt Date: 20221222
  Transmission Date: 20230112
  Serious: Yes (Other)
  Sender: FDA-Public Use
  Company Number: US-AMGEN-USASP2022008526

PATIENT
  Sex: Male

DRUGS (3)
  1. OTEZLA [Suspect]
     Active Substance: APREMILAST
     Indication: Psoriatic arthropathy
     Dosage: 30 MILLIGRAM, BID
     Route: 048
     Dates: start: 20210127
  2. SIMPONI [Concomitant]
     Active Substance: GOLIMUMAB
     Dosage: 100 MILLIGRAM PER MILLILITRE
  3. SIMPONI [Concomitant]
     Active Substance: GOLIMUMAB
     Dosage: 100 MILLIGRAM PER MILLILITRE

REACTIONS (4)
  - Psoriatic arthropathy [Unknown]
  - Therapy non-responder [Unknown]
  - Headache [Unknown]
  - Fatigue [Unknown]
